FAERS Safety Report 6687355-2 (Version None)
Quarter: 2010Q2

REPORT INFORMATION
  Report Type: 
  Country: None (occurrence: None)
  Receive Date: 20100416
  Receipt Date: 20100416
  Transmission Date: 20101027
  Serious: Yes (Hospitalization)
  Sender: FDA-Public Use
  Company Number: None

PATIENT
  Age: 56 Year
  Sex: Male
  Weight: 92.1 kg

DRUGS (2)
  1. SULFAMETHOXAZOLE AND TRIMETHOPRIM [Suspect]
     Indication: ARTHRITIS
     Dosage: 800/160 MG BID PO
     Route: 048
     Dates: start: 20100207
  2. SULFAMETHOXAZOLE AND TRIMETHOPRIM [Suspect]
     Indication: CYST REMOVAL
     Dosage: 800/160 MG BID PO
     Route: 048
     Dates: start: 20100207

REACTIONS (5)
  - DIARRHOEA [None]
  - NAUSEA [None]
  - PANCREATITIS [None]
  - RENAL FAILURE ACUTE [None]
  - VOMITING [None]
